FAERS Safety Report 5815866-8 (Version None)
Quarter: 2008Q3

REPORT INFORMATION
  Report Type: 
  Country: None (occurrence: None)
  Receive Date: 20080721
  Receipt Date: 20080708
  Transmission Date: 20090109
  Serious: Yes (Hospitalization)
  Sender: FDA-Public Use
  Company Number: JP-PFIZER INC-2008054020

PATIENT
  Sex: Female
  Weight: 12 kg

DRUGS (1)
  1. GENOTROPIN [Suspect]
     Indication: TURNER'S SYNDROME
     Dosage: DAILY DOSE:.5MG
     Route: 058
     Dates: start: 20080521, end: 20080625

REACTIONS (1)
  - NEPHROTIC SYNDROME [None]
